FAERS Safety Report 26150698 (Version 1)
Quarter: 2025Q4

REPORT INFORMATION
  Report Type: Spontaneous
  Country: US (occurrence: US)
  Receive Date: 20251212
  Receipt Date: 20251212
  Transmission Date: 20260119
  Serious: No
  Sender: ALCON
  Company Number: US-ALCON LABORATORIES-ALC2025US006189

PATIENT
  Sex: Male

DRUGS (1)
  1. ACOLTREMON [Suspect]
     Active Substance: ACOLTREMON
     Indication: Product used for unknown indication
     Dosage: UNK
     Route: 047
     Dates: start: 20251009, end: 20251030

REACTIONS (2)
  - Vision blurred [Unknown]
  - Drug ineffective [Unknown]
